FAERS Safety Report 20803564 (Version 15)
Quarter: 2024Q1

REPORT INFORMATION
  Report Type: Spontaneous
  Country: US (occurrence: US)
  Receive Date: 20220509
  Receipt Date: 20240220
  Transmission Date: 20240409
  Serious: Yes (Hospitalization, Other)
  Sender: FDA-Public Use
  Company Number: US-PFIZER INC-202200626149

PATIENT
  Age: 66 Year
  Sex: Female
  Weight: 123.83 kg

DRUGS (5)
  1. IBRANCE [Suspect]
     Active Substance: PALBOCICLIB
     Indication: Breast cancer metastatic
     Dosage: 125 MG, 3 WEEKS ON
     Dates: start: 202107
  2. IBRANCE [Suspect]
     Active Substance: PALBOCICLIB
     Dosage: 125 MG
     Dates: start: 20220401
  3. IBRANCE [Suspect]
     Active Substance: PALBOCICLIB
     Dosage: 125 MG
     Dates: start: 20230302
  4. IBRANCE [Suspect]
     Active Substance: PALBOCICLIB
     Dosage: 125 MG PO QDAY, DAYS 1-21 Q28 DAYS
     Route: 048
  5. ANASTROZOLE [Concomitant]
     Active Substance: ANASTROZOLE
     Dosage: UNK

REACTIONS (27)
  - Eye infection [Unknown]
  - Sinusitis [Unknown]
  - Infection [Unknown]
  - Pyrexia [Unknown]
  - Burning sensation [Unknown]
  - Influenza like illness [Unknown]
  - Depressed mood [Unknown]
  - Rash [Unknown]
  - Hypersomnia [Unknown]
  - Pruritus [Recovered/Resolved]
  - Fatigue [Unknown]
  - Cough [Unknown]
  - Thirst [Unknown]
  - Allergic sinusitis [Unknown]
  - Somnolence [Not Recovered/Not Resolved]
  - Visual impairment [Unknown]
  - Mental disorder [Unknown]
  - Sleep disorder [Unknown]
  - Malaise [Unknown]
  - Fall [Unknown]
  - Coccydynia [Unknown]
  - Contusion [Unknown]
  - Pain [Not Recovered/Not Resolved]
  - Erythema [Recovered/Resolved]
  - Irregular sleep wake rhythm disorder [Unknown]
  - Alopecia [Unknown]
  - Dry skin [Unknown]

NARRATIVE: CASE EVENT DATE: 20210101
